FAERS Safety Report 9876203 (Version 1)
Quarter: 2014Q1

REPORT INFORMATION
  Report Type: Spontaneous
  Country: US (occurrence: US)
  Receive Date: 20140206
  Receipt Date: 20140206
  Transmission Date: 20141002
  Serious: No
  Sender: FDA-Public Use
  Company Number: US-ACORDA-ACO_36740_2013

PATIENT
  Sex: Female

DRUGS (1)
  1. AMPYRA [Suspect]
     Indication: VIITH NERVE PARALYSIS
     Dosage: 10 MG, BID
     Route: 048
     Dates: start: 20130605

REACTIONS (1)
  - Feeling abnormal [Unknown]
